FAERS Safety Report 12858089 (Version 1)
Quarter: 2016Q4

REPORT INFORMATION
  Report Type: Spontaneous
  Country: US (occurrence: US)
  Receive Date: 20161018
  Receipt Date: 20161018
  Transmission Date: 20170207
  Serious: No
  Sender: FDA-Public Use
  Company Number: US-SA-2016SA072842

PATIENT
  Age: 43 Year
  Sex: Female

DRUGS (1)
  1. LEMTRADA [Suspect]
     Active Substance: ALEMTUZUMAB
     Route: 041
     Dates: start: 201508

REACTIONS (3)
  - Hypertension [Unknown]
  - Hypothyroidism [Unknown]
  - Fatigue [Unknown]

NARRATIVE: CASE EVENT DATE: 201508
